FAERS Safety Report 22874586 (Version 8)
Quarter: 2025Q4

REPORT INFORMATION
  Report Type: Spontaneous
  Country: US (occurrence: US)
  Receive Date: 20230828
  Receipt Date: 20251229
  Transmission Date: 20260119
  Serious: Yes (Hospitalization, Other)
  Sender: SANOFI AVENTIS
  Company Number: US-SA-SAC20230825000368

PATIENT
  Age: 61 Year
  Sex: Male

DRUGS (41)
  1. DUPIXENT [Suspect]
     Active Substance: DUPILUMAB
     Indication: Nasal polyps
     Dosage: 300 MG, QOW
     Route: 058
     Dates: start: 20220622
  2. DUPIXENT [Suspect]
     Active Substance: DUPILUMAB
     Indication: Nasal polyps
     Dosage: 300 MG, QOW
     Route: 058
  3. PEPCID [Concomitant]
     Active Substance: FAMOTIDINE
     Dosage: 1 (ONE) TIME EACH DAY AT THE SAME TIME
     Dates: start: 20221101
  4. SPIRIVA RESPIMAT [Concomitant]
     Active Substance: TIOTROPIUM BROMIDE
     Dosage: INHALE 2 PUFFS IN THE MORNING
     Route: 050
     Dates: start: 20221130
  5. SINGULAIR [Concomitant]
     Active Substance: MONTELUKAST SODIUM
     Dosage: 10 MG BY MOUTH AT BEDTIME
     Route: 048
  6. PENLAC [Concomitant]
     Active Substance: CICLOPIROX
     Dosage: UNK
     Dates: start: 20220902
  7. LIPITOR [Concomitant]
     Active Substance: ATORVASTATIN CALCIUM
     Dosage: 80 MG BY MOUTH
     Route: 048
     Dates: start: 20220706
  8. CIPRO [Concomitant]
     Active Substance: CIPROFLOXACIN HYDROCHLORIDE
     Dosage: UNK
  9. ECONAZOLE NITRATE [Concomitant]
     Active Substance: ECONAZOLE NITRATE
     Dosage: 1 APPLICATION (1) TIME EACH DAY AT THE SAME TIME
     Dates: start: 20210126
  10. DUONEB [Concomitant]
     Active Substance: ALBUTEROL SULFATE\IPRATROPIUM BROMIDE
     Dosage: UNK
  11. GVOKE [Concomitant]
     Active Substance: GLUCAGON
     Dosage: UNK
  12. BUMEX [Concomitant]
     Active Substance: BUMETANIDE
     Dosage: 1 TABLET BY MOUTH DAILY
     Route: 048
     Dates: start: 20241217
  13. PACERONE [Concomitant]
     Active Substance: AMIODARONE HYDROCHLORIDE
     Dosage: 2 TABLETS BY MOUTH TWICE DAILY FOR 2 WEEKS
     Route: 048
     Dates: start: 20250211
  14. PACERONE [Concomitant]
     Active Substance: AMIODARONE HYDROCHLORIDE
     Dosage: TAKE 1 TABLET BY MOUTH TWICE DAILY
     Route: 048
     Dates: start: 2025
  15. WELLBUTRIN XL [Concomitant]
     Active Substance: BUPROPION HYDROCHLORIDE
     Dosage: 1 TABLET BY MOUTH DAILY
     Route: 048
     Dates: start: 20221018
  16. FIORICET [Concomitant]
     Active Substance: ACETAMINOPHEN\BUTALBITAL\CAFFEINE
     Dosage: TAKE BY MOUTH
     Route: 048
     Dates: start: 20230816
  17. PROTONIX [Concomitant]
     Active Substance: PANTOPRAZOLE SODIUM
     Dosage: 1 (ONE) TIME EACH DAY AT THE SAME TIME
  18. LASIX [Concomitant]
     Active Substance: FUROSEMIDE
     Dosage: 40 MG BY MOUTH IN THE MORNING
     Route: 048
  19. GLUCOPHAGE [Concomitant]
     Active Substance: METFORMIN HYDROCHLORIDE
     Dosage: TAKE 1 TABLET BY MOUTH IN THE MORNING AND 1 TABLET BEFORE BEDTIME
     Route: 048
     Dates: start: 20230517
  20. ELIQUIS [Concomitant]
     Active Substance: APIXABAN
     Dosage: EVERY 12 (TWELVE) HOURS
     Dates: start: 20220706
  21. SYMBICORT [Concomitant]
     Active Substance: BUDESONIDE\FORMOTEROL FUMARATE DIHYDRATE
     Dosage: 2 PUFFS IN THE MORNING AND 2 PUFFS IN THE EVENING
     Dates: start: 20221130
  22. COREG [Concomitant]
     Active Substance: CARVEDILOL
     Dosage: EVERY 12 (TWELVE) HOURS
     Dates: start: 20221116
  23. HUMALOG [Concomitant]
     Active Substance: INSULIN LISPRO
     Dosage: UNK
  24. ALBUTEROL SULFATE [Concomitant]
     Active Substance: ALBUTEROL SULFATE
     Dosage: INHALE 2 PUFFS EVERY 4 (FOUR) HOURS IF NEEDED
  25. CYMBALTA [Concomitant]
     Active Substance: DULOXETINE HYDROCHLORIDE
     Dosage: 1 CAPSULE (30 MG) BY MOUTH IN THE MORNING AND 1 CAPSULE (30 MG) BEFORE BEDTIME. (PATIENT TAKING DIFF
     Route: 048
     Dates: start: 20241101
  26. LISINOPRIL [Concomitant]
     Active Substance: LISINOPRIL
     Dosage: 1 (ONE) TIME EACH DAY AT THE SAME TIME
  27. REGLAN [Concomitant]
     Active Substance: METOCLOPRAMIDE HYDROCHLORIDE
     Dosage: TAKE 5 MG BY MOUTH IN THE MORNING AND 5 MG AT NOON AND 5 MG IN THE EVENING AND 5 MG BEFORE BEDTIME
     Route: 048
     Dates: start: 20221102
  28. ZYRTEC [Concomitant]
     Active Substance: CETIRIZINE HYDROCHLORIDE
     Dosage: TAKE BY MOUTH
     Route: 048
  29. TIKOSYN [Concomitant]
     Active Substance: DOFETILIDE
     Dosage: 250 MCG BY MOUTH IN THE MORNING AND 250 MCG IN THE EVENING
     Route: 048
     Dates: start: 20250315
  30. NOVOLOG [Concomitant]
     Active Substance: INSULIN ASPART
     Dosage: UNK
  31. NEURONTIN [Concomitant]
     Active Substance: GABAPENTIN
     Dosage: 1 TABLET (600 MG) BY MOUTH IN THE MORNING AND 1 TABLET (600 MG) IN THE EVENING AND 1 TABLET (600 MG)
     Dates: start: 20240930
  32. LOPRESSOR [Concomitant]
     Active Substance: METOPROLOL TARTRATE
     Dosage: EVERY 12 (TWELVE) HOURS
     Dates: start: 20220823
  33. ASMANEX [Concomitant]
     Active Substance: MOMETASONE FUROATE
     Dosage: UNK
  34. XYLOCAINE [Concomitant]
     Active Substance: LIDOCAINE HYDROCHLORIDE
     Dosage: INJECT INTO THE SKIN
     Route: 023
     Dates: start: 20221028
  35. INSPRA [Concomitant]
     Active Substance: EPLERENONE
     Dosage: 25 MG BY MOUTH DAILY
     Route: 048
     Dates: start: 20230119
  36. ROBAXIN [Concomitant]
     Active Substance: METHOCARBAMOL
     Dosage: 1 TABLET BY MOUTH DAILY
     Route: 048
  37. TEMOVATE [Concomitant]
     Active Substance: CLOBETASOL PROPIONATE
     Dosage: UNK
  38. LANTUS SOLOSTAR [Concomitant]
     Active Substance: INSULIN GLARGINE
     Dosage: INJECT 55 UNITS UNDER THE SKIN IN THE MORNING
     Route: 058
     Dates: start: 20230414
  39. NORVASC [Concomitant]
     Active Substance: AMLODIPINE BESYLATE
     Dosage: 5 MG BY MOUTH DAILY
     Route: 048
  40. BREZTRI [Concomitant]
     Active Substance: BUDESONIDE\FORMOTEROL\GLYCOPYRROLATE
     Dosage: UNK
     Dates: start: 20240415
  41. ASPIRIN [Concomitant]
     Active Substance: ASPIRIN
     Dosage: 1 (ONE) TIME EACH DAY AT THE SAME TIME

REACTIONS (9)
  - Aspiration [Unknown]
  - Cardiac failure congestive [Unknown]
  - Pneumonia [Unknown]
  - Blood glucose decreased [Unknown]
  - Chronic obstructive pulmonary disease [Unknown]
  - Hospitalisation [Unknown]
  - Haemorrhage [Unknown]
  - Diabetic complication [Unknown]
  - Dyspnoea [Recovered/Resolved]
